FAERS Safety Report 9115881 (Version 1)
Quarter: 2013Q1

REPORT INFORMATION
  Report Type: Spontaneous
  Country: US (occurrence: US)
  Receive Date: 20130225
  Receipt Date: 20130225
  Transmission Date: 20140127
  Serious: Yes (Hospitalization)
  Sender: FDA-Public Use
  Company Number: US-GLAXOSMITHKLINE-A1013388A

PATIENT
  Sex: Female

DRUGS (1)
  1. VOTRIENT [Suspect]
     Indication: UTERINE CANCER
     Dosage: 200MG SEE DOSAGE TEXT
     Route: 048
     Dates: start: 20130125

REACTIONS (1)
  - Hospitalisation [Unknown]
